FAERS Safety Report 7456277-1 (Version None)
Quarter: 2011Q2

REPORT INFORMATION
  Report Type: 
  Country: None (occurrence: None)
  Receive Date: 20110503
  Receipt Date: 20110405
  Transmission Date: 20111010
  Serious: Yes (Hospitalization, Other)
  Sender: FDA-Public Use
  Company Number: US-BAYER-2010-008417

PATIENT
  Age: 26 Year
  Sex: Female
  Weight: 82 kg

DRUGS (4)
  1. YAZ [Suspect]
     Indication: MENSTRUATION IRREGULAR
  2. YAZ [Suspect]
     Indication: CONTRACEPTION
     Dosage: UNK
     Dates: start: 20080718, end: 20081207
  3. YAZ [Suspect]
     Indication: PREMENSTRUAL SYNDROME
  4. TOPAMAX [Concomitant]
     Indication: MIGRAINE
     Dosage: 25 MG, UNK

REACTIONS (2)
  - PNEUMONIA [None]
  - PULMONARY EMBOLISM [None]
